FAERS Safety Report 9942979 (Version 1)
Quarter: 2014Q1

REPORT INFORMATION
  Report Type: Report from Study
  Country: US (occurrence: US)
  Receive Date: 20140303
  Receipt Date: 20140303
  Transmission Date: 20141002
  Serious: No
  Sender: FDA-Public Use
  Company Number: US-ABBVIE-13P-163-1046279-00

PATIENT
  Age: 40 Year
  Sex: Female
  Weight: 99.88 kg

DRUGS (8)
  1. HUMIRA [Suspect]
     Indication: RHEUMATOID ARTHRITIS
     Route: 058
     Dates: start: 2007
  2. CELEBREX [Concomitant]
     Indication: RHEUMATOID ARTHRITIS
  3. CYCLOBENZAPRINE [Concomitant]
     Indication: MUSCLE SPASMS
  4. PROTONIX [Concomitant]
     Indication: GASTROOESOPHAGEAL REFLUX DISEASE
  5. VICODIN [Concomitant]
     Indication: PAIN
  6. LEVOTHYROXINE [Concomitant]
     Indication: HYPOTHYROIDISM
  7. GLUCOSAMINE W/CHONDROITIN [Concomitant]
     Indication: SUPPLEMENTATION THERAPY
  8. ZYRTEC [Concomitant]
     Indication: HYPERSENSITIVITY

REACTIONS (1)
  - Sinus congestion [Recovered/Resolved]
